FAERS Safety Report 16758285 (Version 1)
Quarter: 2019Q3

REPORT INFORMATION
  Report Type: Spontaneous
  Country: US (occurrence: US)
  Receive Date: 20190830
  Receipt Date: 20190830
  Transmission Date: 20191005
  Serious: Yes (Other)
  Sender: FDA-Public Use
  Company Number: US-TEVA-2019-US-1097535

PATIENT
  Sex: Male

DRUGS (1)
  1. AJOVY [Suspect]
     Active Substance: FREMANEZUMAB-VFRM
     Dosage: THE LAST DOSE ADMINISTRED: 23-JUL-2019
     Route: 065
     Dates: start: 201905

REACTIONS (29)
  - Anxiety [Unknown]
  - Injection site reaction [Unknown]
  - Adverse drug reaction [Unknown]
  - Injection site erythema [Recovered/Resolved]
  - Injection site pruritus [Recovered/Resolved]
  - Deafness [Recovered/Resolved]
  - Diarrhoea [Unknown]
  - Fatigue [Unknown]
  - Diarrhoea [Unknown]
  - Increased appetite [Unknown]
  - Flushing [Unknown]
  - Nausea [Unknown]
  - Glossitis [Recovered/Resolved]
  - Tinnitus [Recovered/Resolved]
  - Alopecia [Unknown]
  - Weight increased [Unknown]
  - Hyperhidrosis [Unknown]
  - Feeling hot [Unknown]
  - Injection site macule [Recovered/Resolved]
  - Apparent death [Unknown]
  - Abdominal distension [Unknown]
  - Injection site swelling [Recovered/Resolved]
  - Anaphylactic reaction [Unknown]
  - Blindness [Recovered/Resolved]
  - Tongue blistering [Recovered/Resolved]
  - Confusional state [Unknown]
  - Pallor [Unknown]
  - Gastrooesophageal reflux disease [Unknown]
  - Aphasia [Recovered/Resolved]

NARRATIVE: CASE EVENT DATE: 201905
